FAERS Safety Report 7753436-5 (Version None)
Quarter: 2011Q3

REPORT INFORMATION
  Report Type: 
  Country: None (occurrence: None)
  Receive Date: 20110915
  Receipt Date: 20110905
  Transmission Date: 20111222
  Serious: Yes (Hospitalization)
  Sender: FDA-Public Use
  Company Number: DE-CELGENEUS-062-50794-11090457

PATIENT
  Age: 56 Year
  Sex: Female
  Weight: 93 kg

DRUGS (13)
  1. VIDAZA [Suspect]
     Dosage: 202 MILLIGRAM
     Route: 065
     Dates: start: 20110802, end: 20110806
  2. IDARUBICIN HCL [Suspect]
     Dosage: 24.24 MILLIGRAM
     Route: 065
     Dates: start: 20110804, end: 20110804
  3. ETOPOSIDE [Suspect]
     Dosage: 202 MILLIGRAM
     Route: 065
     Dates: start: 20110802, end: 20110804
  4. DEXAMETHASONE [Concomitant]
     Indication: NAUSEA
     Dosage: PREVIOUSLY MORE
     Route: 048
     Dates: start: 20110812
  5. HEPSERA [Concomitant]
     Indication: HEPATITIS B
     Dosage: 10 MILLIGRAM
     Route: 048
     Dates: start: 20110802
  6. PANTOPRAZOLE [Concomitant]
     Indication: PROPHYLAXIS
     Dosage: 40 MILLIGRAM
     Route: 048
     Dates: start: 20110802
  7. IDARUBICIN HCL [Suspect]
     Dosage: 24.24 MILLIGRAM
     Route: 065
     Dates: start: 20110806, end: 20110806
  8. FOLSAN [Concomitant]
     Indication: PROPHYLAXIS
     Route: 048
     Dates: start: 20110802
  9. IDARUBICIN HCL [Suspect]
     Dosage: 24.24 MILLIGRAM
     Route: 065
     Dates: start: 20110802, end: 20110802
  10. LISINOPRIL [Concomitant]
     Indication: HYPERTENSION
     Dosage: 10 MILLIGRAM
     Route: 048
     Dates: start: 20110802
  11. COTRIM DS [Concomitant]
     Indication: PROPHYLAXIS
     Dosage: 1600/300MG
     Route: 048
     Dates: start: 20110802
  12. NOXAFIL [Concomitant]
     Indication: PROPHYLAXIS
     Dosage: 600 MILLIGRAM
     Route: 048
     Dates: start: 20110807, end: 20110829
  13. ESIDRIX [Concomitant]
     Indication: HYPERTENSION
     Dosage: 12.5 MILLIGRAM
     Route: 048
     Dates: start: 20110802

REACTIONS (1)
  - ENTEROCOLITIS INFECTIOUS [None]
